FAERS Safety Report 13288588 (Version 1)
Quarter: 2017Q1

REPORT INFORMATION
  Report Type: Spontaneous
  Country: US (occurrence: US)
  Receive Date: 20170302
  Receipt Date: 20170302
  Transmission Date: 20170428
  Serious: Yes (Other)
  Sender: FDA-Public Use
  Company Number: US-TEVA-742849USA

PATIENT
  Sex: Male

DRUGS (2)
  1. FLUOROURACIL. [Suspect]
     Active Substance: FLUOROURACIL
     Route: 042
  2. TEVADAPTOR DEVICE [Suspect]
     Active Substance: DEVICE
     Route: 042

REACTIONS (2)
  - Exposure to toxic agent [Unknown]
  - Device connection issue [Unknown]
